FAERS Safety Report 8506660-8 (Version None)
Quarter: 2012Q3

REPORT INFORMATION
  Report Type: 
  Country: None (occurrence: None)
  Receive Date: 20120712
  Receipt Date: 20120710
  Transmission Date: 20120928
  Serious: No
  Sender: FDA-Public Use
  Company Number: US-PFIZER INC-2012165814

PATIENT
  Sex: Female

DRUGS (3)
  1. CHANTIX [Suspect]
     Indication: SMOKING CESSATION THERAPY
     Dosage: UNK
     Route: 048
  2. HYDROCODONE [Concomitant]
     Indication: BACK PAIN
     Dosage: 4.5/500MG, DAILY
  3. METOPROLOL [Concomitant]
     Indication: HYPERTENSION
     Dosage: ONE AND HALF TABLET DAILY

REACTIONS (6)
  - EMOTIONAL DISORDER [None]
  - IRRITABILITY [None]
  - DYSGEUSIA [None]
  - STRESS [None]
  - ABNORMAL DREAMS [None]
  - PAROSMIA [None]
